FAERS Safety Report 12950576 (Version 3)
Quarter: 2016Q4

REPORT INFORMATION
  Report Type: Report from Study
  Country: GB (occurrence: GB)
  Receive Date: 20161116
  Receipt Date: 20161213
  Transmission Date: 20170207
  Serious: Yes (Hospitalization)
  Sender: FDA-Public Use
  Company Number: GB-B.I. PHARMACEUTICALS,INC./RIDGEFIELD-2016-BI-069435

PATIENT
  Age: 46 Year
  Sex: Female
  Weight: 66.7 kg

DRUGS (2)
  1. PLACEBO [Suspect]
     Active Substance: UNSPECIFIED INGREDIENT
     Indication: OVARIAN CANCER
     Dosage: DATE OF LAST ADMINISTRATION PRIOR TO THE SAE : 16OCT2016
     Route: 048
     Dates: start: 20160906
  2. CYCLOPHOSPHAMIDE. [Suspect]
     Active Substance: CYCLOPHOSPHAMIDE
     Indication: OVARIAN CANCER
     Dosage: DATE OF LAST ADMINISTRATION PRIOR TO THE SAE : 16OCT2016
     Route: 048
     Dates: start: 20160906

REACTIONS (2)
  - Bacterial infection [Recovering/Resolving]
  - Abdominal pain [Not Recovered/Not Resolved]

NARRATIVE: CASE EVENT DATE: 20161017
